FAERS Safety Report 5114528-2 (Version None)
Quarter: 2006Q3

REPORT INFORMATION
  Report Type: 
  Country: None (occurrence: None)
  Receive Date: 20060926
  Receipt Date: 20060116
  Transmission Date: 20061208
  Serious: Yes (Other)
  Sender: FDA-Public Use
  Company Number: PHBS2006BE01095

PATIENT
  Age: 56 Year
  Sex: Female

DRUGS (11)
  1. ZOMETA [Suspect]
     Indication: METASTASES TO BONE
     Dosage: 4 MG
     Dates: start: 20020920, end: 20051104
  2. NAVELBINE [Concomitant]
     Route: 065
     Dates: start: 20040625
  3. FLUOROURACIL [Concomitant]
     Route: 065
     Dates: start: 20040625, end: 20041201
  4. FEMARA [Concomitant]
     Route: 065
     Dates: start: 20051028
  5. PLAQUENIL [Concomitant]
     Route: 065
  6. DAFALGAN [Concomitant]
     Route: 065
  7. TRAZOLAN [Concomitant]
     Route: 065
  8. SERENASE [Concomitant]
     Route: 065
  9. DUPHALAC [Concomitant]
     Route: 065
  10. SELENIUM SULFIDE [Concomitant]
     Route: 065
  11. AREDIA [Suspect]
     Indication: METASTASES TO BONE
     Dosage: 90 MG
     Dates: start: 20020628, end: 20020823

REACTIONS (11)
  - ALVEOLITIS [None]
  - BLOOD CREATININE INCREASED [None]
  - DRY SOCKET [None]
  - GINGIVAL RECESSION [None]
  - IMPAIRED HEALING [None]
  - LOOSE TOOTH [None]
  - OSTEONECROSIS [None]
  - RENAL IMPAIRMENT [None]
  - TOOTH ABSCESS [None]
  - TOOTH DISORDER [None]
  - TOOTHACHE [None]
